FAERS Safety Report 9399221 (Version 2)
Quarter: 2013Q3

REPORT INFORMATION
  Report Type: Spontaneous
  Country: JP (occurrence: JP)
  Receive Date: 20130710
  Receipt Date: 20130801
  Transmission Date: 20140515
  Serious: Yes (Other)
  Sender: FDA-Public Use
  Company Number: DSJ-2013-15018

PATIENT
  Age: 39 Year
  Sex: Female
  Weight: 58 kg

DRUGS (12)
  1. OLMETEC [Suspect]
     Indication: HYPERTENSION
     Route: 048
     Dates: start: 20120328, end: 20120328
  2. ARTIST (CARVEDILOL)(CARVEDILOL) [Concomitant]
  3. CORINAEL CR (NIFEDIPINE)(NIFEDIPINE) [Concomitant]
  4. CARDENALIN (DOXAZOSIN MESILATE)(DOXAZOSIN MESILATE) [Concomitant]
  5. FLUITRAN (TRICHLORMETHIAZIDE)(TRICHLORMETHIAZIDE) [Concomitant]
  6. ATELEC (CILNIDIPINE)(CILNIDIPINE) [Concomitant]
  7. ACTOS (PIOGLITAZONE)(PIOGLITAZONE) [Concomitant]
  8. NESINA (ALOGLIPTIN BENZOATE) [Concomitant]
  9. GLICLAZIDE (GLICLAZIDE)(GLICLAZIDE) [Concomitant]
  10. PURSENNID (SENNA ALEXANDRINA LEAF)(SENNA ALEXANDRINA LEAF) [Concomitant]
  11. STANZOME (LANSOPRAZOLE)(LANSOPRAZOLE) [Concomitant]
  12. MAGMITT (MAGNESIUM OXIDE)(MAGNESIUM OXIDE) [Concomitant]

REACTIONS (8)
  - Renal impairment [None]
  - Hypotension [None]
  - Hypoglycaemia [None]
  - Headache [None]
  - Hunger [None]
  - Vision blurred [None]
  - Incontinence [None]
  - Fatigue [None]
